FAERS Safety Report 4282084-7 (Version None)
Quarter: 2004Q1

REPORT INFORMATION
  Report Type: 
  Country: None (occurrence: None)
  Receive Date: 20040130
  Receipt Date: 20030307
  Transmission Date: 20041129
  Serious: No
  Sender: FDA-Public Use
  Company Number: US-BRISTOL-MYERS SQUIBB COMPANY-12213641

PATIENT
  Age: 54 Year
  Sex: Male
  Weight: 118 kg

DRUGS (1)
  1. DESYREL [Suspect]
     Dosage: ^4 MONTHS AGO^ TOOK 75MG, 1 TABLET.
     Route: 048

REACTIONS (1)
  - URTICARIA [None]
